FAERS Safety Report 25251403 (Version 4)
Quarter: 2025Q3

REPORT INFORMATION
  Report Type: Report from Study
  Country: US (occurrence: US)
  Receive Date: 20250429
  Receipt Date: 20250711
  Transmission Date: 20251020
  Serious: Yes (Other)
  Sender: ABBVIE
  Company Number: US-ABBVIE-6245641

PATIENT
  Age: 69 Year
  Sex: Female
  Weight: 96.615 kg

DRUGS (7)
  1. HUMIRA [Suspect]
     Active Substance: ADALIMUMAB
     Indication: Ankylosing spondylitis
     Dosage: CITRATE FREE
     Route: 058
     Dates: start: 202404
  2. XIIDRA [Concomitant]
     Active Substance: LIFITEGRAST
     Indication: Dry eye
  3. PREGABALIN [Concomitant]
     Active Substance: PREGABALIN
     Indication: Trigeminal nerve disorder
  4. CALCITRIOL [Concomitant]
     Active Substance: CALCITRIOL
     Indication: Calcium deficiency
  5. ATORVASTATIN [Concomitant]
     Active Substance: ATORVASTATIN
     Indication: Blood cholesterol increased
  6. LOSARTAN [Concomitant]
     Active Substance: LOSARTAN
     Indication: Hypertension
  7. VITAMIN B COMPLEX [Concomitant]
     Active Substance: CYANOCOBALAMIN\DEXPANTHENOL\NIACINAMIDE\PYRIDOXINE HYDROCHLORIDE\RIBOFLAVIN 5^-PHOSPHATE SODIUM\THIA
     Indication: Trigeminal nerve disorder

REACTIONS (16)
  - Sacral radiculopathy [Not Recovered/Not Resolved]
  - Respiratory tract infection [Recovering/Resolving]
  - Epidural injection [Unknown]
  - Liver function test abnormal [Recovering/Resolving]
  - Headache [Recovering/Resolving]
  - Body temperature abnormal [Not Recovered/Not Resolved]
  - Balance disorder [Not Recovered/Not Resolved]
  - Arthralgia [Recovering/Resolving]
  - Hepatic steatosis [Recovering/Resolving]
  - Peripheral venous disease [Not Recovered/Not Resolved]
  - Spinal disorder [Unknown]
  - Peripheral swelling [Unknown]
  - Musculoskeletal disorder [Unknown]
  - Peripheral artery occlusion [Not Recovered/Not Resolved]
  - Ankylosing spondylitis [Not Recovered/Not Resolved]
  - Urinary incontinence [Unknown]

NARRATIVE: CASE EVENT DATE: 20240101
